FAERS Safety Report 4873639-7 (Version None)
Quarter: 2005Q4

REPORT INFORMATION
  Report Type: 
  Country: None (occurrence: None)
  Receive Date: 20051201
  Receipt Date: 20050801
  Transmission Date: 20060501
  Serious: No
  Sender: FDA-Public Use
  Company Number: 2005PV000909

PATIENT
  Age: 55 Year
  Sex: Male
  Weight: 106.5953 kg

DRUGS (17)
  1. BYETTA [Suspect]
     Indication: DIABETES MELLITUS NON-INSULIN-DEPENDENT
     Dosage: 10 MCG; BID; SC
     Route: 058
  2. AMARYL [Concomitant]
  3. INSULIN [Concomitant]
  4. XANAX [Concomitant]
  5. ZYRTEC [Concomitant]
  6. SINGULAIR [Concomitant]
  7. PLETAL [Concomitant]
  8. LIPITOR [Concomitant]
  9. PLAVIX [Concomitant]
  10. TRICOR [Concomitant]
  11. ALTACE [Concomitant]
  12. PROTONIX [Concomitant]
  13. ACTOS [Concomitant]
  14. TRIAMTERENE [Concomitant]
  15. ALLOPURINOL [Concomitant]
  16. ASCORBIC ACID [Concomitant]
  17. FOLIC ACID [Concomitant]

REACTIONS (3)
  - BLOOD GLUCOSE INCREASED [None]
  - DYSGEUSIA [None]
  - NAUSEA [None]
